FAERS Safety Report 24334396 (Version 2)
Quarter: 2024Q3

REPORT INFORMATION
  Report Type: Report from Study
  Country: US (occurrence: US)
  Receive Date: 20240918
  Receipt Date: 20240924
  Transmission Date: 20241017
  Serious: Yes (Hospitalization)
  Sender: AMGEN
  Company Number: US-AMGEN-USASP2024185053

PATIENT
  Age: 19 Year
  Sex: Female

DRUGS (1)
  1. ACTIMMUNE [Suspect]
     Active Substance: INTERFERON GAMMA-1B
     Indication: Neutrophil function disorder
     Dosage: 60 MICROGRAM, 3 TIMES/WK (0.3 ML) (INJECT UNDER THE SKIN ON MONDAY, WEDNESDAY, AND FRIDAY)
     Route: 065

REACTIONS (3)
  - Spinal cord abscess [Unknown]
  - Off label use [Unknown]
  - Refusal of treatment by patient [Unknown]
